FAERS Safety Report 16989993 (Version 4)
Quarter: 2020Q1

REPORT INFORMATION
  Report Type: Spontaneous
  Country: US (occurrence: US)
  Receive Date: 20191104
  Receipt Date: 20200310
  Transmission Date: 20200409
  Serious: Yes (Hospitalization, Other)
  Sender: FDA-Public Use
  Company Number: US-PFIZER INC-2015436837

PATIENT
  Age: 73 Year
  Sex: Female
  Weight: 113 kg

DRUGS (8)
  1. REVATIO [Suspect]
     Active Substance: SILDENAFIL CITRATE
     Indication: LEFT VENTRICULAR FAILURE
     Dosage: 80 MG, 3X/DAY (FOUR 20 MG TABLETS)
     Route: 048
     Dates: start: 20151207
  2. REVATIO [Suspect]
     Active Substance: SILDENAFIL CITRATE
     Dosage: 10 MG, 3X/DAY
     Dates: start: 201910
  3. REVATIO [Suspect]
     Active Substance: SILDENAFIL CITRATE
     Indication: PULMONARY ARTERIAL HYPERTENSION
     Dosage: 80 MG, 3X/DAY (FOUR 20 MG TABLETS)
     Route: 048
     Dates: start: 20170724
  4. REVATIO [Suspect]
     Active Substance: SILDENAFIL CITRATE
     Dosage: 0.5 DF, 3X/DAY (0.5 TABLETS BY MOUTH 3 TIMES DAILY/TAKE HALF TABLET 3 TIMES A DAY)
     Route: 048
  5. AMIODARONE [Concomitant]
     Active Substance: AMIODARONE
     Dosage: UNK
     Dates: start: 2012
  6. REVATIO [Suspect]
     Active Substance: SILDENAFIL CITRATE
     Indication: CARDIAC DISORDER
     Dosage: 80 MG, 3X/DAY (FOUR 20 MG TABLETS)
     Route: 048
     Dates: start: 20181210
  7. REVATIO [Suspect]
     Active Substance: SILDENAFIL CITRATE
     Indication: PULMONARY ARTERIAL PRESSURE
     Dosage: 80 MG, 3X/DAY (FOUR 20 MG TABLETS)
     Route: 048
  8. CARVEDILOL. [Concomitant]
     Active Substance: CARVEDILOL
     Indication: BLOOD PRESSURE ABNORMAL
     Dosage: 6.25 MG, UNK
     Dates: start: 2012

REACTIONS (3)
  - Off label use [Not Recovered/Not Resolved]
  - Product use issue [Not Recovered/Not Resolved]
  - Chronic right ventricular failure [Not Recovered/Not Resolved]

NARRATIVE: CASE EVENT DATE: 20151207
